FAERS Safety Report 8334236-4 (Version None)
Quarter: 2012Q2

REPORT INFORMATION
  Report Type: 
  Country: None (occurrence: None)
  Receive Date: 20120503
  Receipt Date: 20120425
  Transmission Date: 20120825
  Serious: Yes (Other)
  Sender: FDA-Public Use
  Company Number: GB-GLAXOSMITHKLINE-B0798471A

PATIENT

DRUGS (2)
  1. ANTI-EPILEPTIC DRUGS (UNSPECIFIED) [Concomitant]
  2. POTIGA [Suspect]
     Indication: EPILEPSY
     Route: 065

REACTIONS (2)
  - CONVULSION [None]
  - BLADDER DISORDER [None]
